FAERS Safety Report 17566196 (Version 1)
Quarter: 2020Q1

REPORT INFORMATION
  Report Type: Spontaneous
  Country: IT (occurrence: IT)
  Receive Date: 20200320
  Receipt Date: 20200320
  Transmission Date: 20200409
  Serious: Yes (Other)
  Sender: FDA-Public Use
  Company Number: NVSC2020IT079534

PATIENT
  Age: 46 Year
  Sex: Male

DRUGS (6)
  1. CYCLOSPORINE. [Suspect]
     Active Substance: CYCLOSPORINE
     Indication: IMMUNOSUPPRESSANT DRUG THERAPY
  2. MYCOPHENOLATE MOFETIL. [Suspect]
     Active Substance: MYCOPHENOLATE MOFETIL
     Indication: LIVER TRANSPLANT
     Dosage: UNK
     Route: 065
  3. PREDNISONE. [Suspect]
     Active Substance: PREDNISONE
     Indication: LIVER TRANSPLANT
     Dosage: UNK
     Route: 065
  4. CYCLOSPORINE. [Suspect]
     Active Substance: CYCLOSPORINE
     Indication: LIVER TRANSPLANT
     Dosage: 8 MG/KG, QD
     Route: 065
  5. MYCOPHENOLATE MOFETIL. [Suspect]
     Active Substance: MYCOPHENOLATE MOFETIL
     Indication: IMMUNOSUPPRESSANT DRUG THERAPY
  6. PREDNISONE. [Suspect]
     Active Substance: PREDNISONE
     Indication: IMMUNOSUPPRESSANT DRUG THERAPY

REACTIONS (9)
  - Unresponsive to stimuli [Unknown]
  - Nervous system disorder [Unknown]
  - Confusional state [Unknown]
  - Product use in unapproved indication [Unknown]
  - Dysarthria [Unknown]
  - Psychomotor hyperactivity [Unknown]
  - Altered state of consciousness [Unknown]
  - Encephalopathy [Unknown]
  - Dysprosody [Unknown]
